FAERS Safety Report 5309574-X (Version None)
Quarter: 2007Q2

REPORT INFORMATION
  Report Type: 
  Country: None (occurrence: None)
  Receive Date: 20070425
  Receipt Date: 20070425
  Transmission Date: 20071010
  Serious: Yes (Life-Threatening)
  Sender: FDA-Public Use
  Company Number: None

PATIENT
  Age: 44 Year
  Sex: Male

DRUGS (12)
  1. PROLIXIN [Suspect]
     Indication: ANTISOCIAL PERSONALITY DISORDER
     Dosage: 10 MG PO BID
     Route: 048
     Dates: start: 20061219, end: 20070115
  2. PROLIXIN [Suspect]
     Indication: SCHIZOAFFECTIVE DISORDER
     Dosage: 10 MG PO BID
     Route: 048
     Dates: start: 20061219, end: 20070115
  3. SEROQUEL [Suspect]
     Indication: ANTISOCIAL PERSONALITY DISORDER
     Dosage: SEE IMAGE
     Route: 048
     Dates: start: 20061219, end: 20070115
  4. SEROQUEL [Suspect]
     Indication: SCHIZOAFFECTIVE DISORDER
     Dosage: SEE IMAGE
     Route: 048
     Dates: start: 20061219, end: 20070115
  5. ZYPREXA [Suspect]
     Indication: ANTISOCIAL PERSONALITY DISORDER
     Dosage: 5 MG PO TID
     Route: 048
     Dates: start: 20061221, end: 20070115
  6. ZYPREXA [Suspect]
     Indication: SCHIZOAFFECTIVE DISORDER
     Dosage: 5 MG PO TID
     Route: 048
     Dates: start: 20061221, end: 20070115
  7. BENZTROPINE [Concomitant]
  8. CHLORAL HYDRATE [Concomitant]
  9. CLONAZEPAM [Concomitant]
  10. HYDROCHLOROTHIAZIDE [Concomitant]
  11. LORAZEPAM [Concomitant]
  12. VALPROIC ACID [Concomitant]

REACTIONS (1)
  - NEUROLEPTIC MALIGNANT SYNDROME [None]
